FAERS Safety Report 8247123-7 (Version None)
Quarter: 2012Q1

REPORT INFORMATION
  Report Type: 
  Country: None (occurrence: None)
  Receive Date: 20120330
  Receipt Date: 20120316
  Transmission Date: 20120608
  Serious: Yes (Congenital Anomaly)
  Sender: FDA-Public Use
  Company Number: DZ-ROCHE-1053878

PATIENT
  Sex: Male

DRUGS (1)
  1. MABTHERA [Suspect]
     Indication: IDIOPATHIC THROMBOCYTOPENIC PURPURA
     Route: 064
     Dates: start: 20110501, end: 20110606

REACTIONS (2)
  - LIMB REDUCTION DEFECT [None]
  - MATERNAL EXPOSURE TIMING UNSPECIFIED [None]
